FAERS Safety Report 5635226-2 (Version None)
Quarter: 2008Q1

REPORT INFORMATION
  Report Type: 
  Country: None (occurrence: None)
  Receive Date: 20080222
  Receipt Date: 20080125
  Transmission Date: 20080703
  Serious: No
  Sender: FDA-Public Use
  Company Number: US-BOEHRINGER INGELHEIM GMBH, GERMANY-2008-BP-01245BP

PATIENT
  Sex: Male

DRUGS (8)
  1. SPIRIVA [Suspect]
     Indication: CHRONIC OBSTRUCTIVE PULMONARY DISEASE
     Route: 055
     Dates: start: 20060801
  2. XOPENEX [Concomitant]
     Indication: CHRONIC OBSTRUCTIVE PULMONARY DISEASE
  3. UNIPHYL [Concomitant]
     Indication: CHRONIC OBSTRUCTIVE PULMONARY DISEASE
  4. ASPIRIN [Concomitant]
  5. THYROID TAB [Concomitant]
  6. VITAMINS [Concomitant]
  7. PREVACID [Concomitant]
  8. IRON [Concomitant]

REACTIONS (1)
  - DYSPNOEA [None]
